FAERS Safety Report 10420489 (Version 1)
Quarter: 2014Q3

REPORT INFORMATION
  Report Type: Spontaneous
  Country: US (occurrence: None)
  Receive Date: 20140709
  Receipt Date: 20140709
  Transmission Date: 20150326
  Serious: Yes (Other)
  Sender: FDA-Public Use
  Company Number: PHEH2014US004519

PATIENT
  Age: 59 Year
  Sex: Male

DRUGS (1)
  1. GLEEVEC [Suspect]
     Active Substance: IMATINIB MESYLATE
     Indication: ACUTE LYMPHOCYTIC LEUKAEMIA
     Dosage: UNK UNK UNK

REACTIONS (7)
  - Neuropathy peripheral [None]
  - Muscle spasms [None]
  - Bleeding time prolonged [None]
  - Diarrhoea [None]
  - Oedema peripheral [None]
  - Eye swelling [None]
  - Abdominal discomfort [None]
